FAERS Safety Report 8485571-0 (Version None)
Quarter: 2012Q3

REPORT INFORMATION
  Report Type: 
  Country: None (occurrence: None)
  Receive Date: 20120703
  Receipt Date: 20120702
  Transmission Date: 20120928
  Serious: Yes (Hospitalization, Other)
  Sender: FDA-Public Use
  Company Number: US-JNJFOC-20081000351

PATIENT
  Sex: Female
  Weight: 95.26 kg

DRUGS (27)
  1. OTHER THERAPEUTIC MEDICATIONS [Concomitant]
  2. INVEGA [Suspect]
     Indication: BIPOLAR DISORDER
     Route: 048
     Dates: start: 20080901, end: 20080901
  3. INVEGA [Suspect]
     Route: 048
     Dates: start: 20080101, end: 20080101
  4. INVEGA [Suspect]
     Indication: SCHIZOPHRENIA
     Route: 048
     Dates: start: 20080101, end: 20080101
  5. HALDOL [Interacting]
     Indication: BIPOLAR DISORDER
     Route: 048
     Dates: start: 20080926
  6. DEPAKOTE [Concomitant]
     Indication: BIPOLAR DISORDER
     Route: 048
     Dates: start: 20030801
  7. LABETALOL HCL [Concomitant]
     Indication: HYPERTENSION
     Route: 048
  8. ALLOPURINOL [Concomitant]
     Indication: GOUT
     Route: 048
  9. IBUPROFEN [Concomitant]
     Indication: HEADACHE
     Route: 048
  10. ALBUTEROL [Concomitant]
     Indication: ASTHMA
     Route: 048
     Dates: start: 19980101
  11. SIMVASTATIN [Concomitant]
     Indication: BLOOD CHOLESTEROL ABNORMAL
  12. INVEGA [Suspect]
     Route: 048
     Dates: start: 20080901, end: 20080901
  13. HALDOL [Interacting]
     Route: 048
  14. INVEGA [Suspect]
     Route: 048
     Dates: start: 20080101, end: 20080101
  15. DEPAKOTE ER [Concomitant]
     Indication: BIPOLAR DISORDER
     Dosage: 1500 MG 1 DAILY IN THE AM, 2500 MG 1 DAILY IN THE PM.
     Route: 048
     Dates: start: 20030101
  16. PREVACID [Concomitant]
     Indication: GASTROOESOPHAGEAL REFLUX DISEASE
     Route: 048
     Dates: start: 20030101
  17. ACETAMINOPHEN [Concomitant]
     Indication: HEADACHE
     Route: 048
  18. COZAAR [Concomitant]
     Indication: HYPERTENSION
     Route: 048
     Dates: start: 20050101
  19. SEREVENT [Concomitant]
     Indication: ASTHMA
     Route: 048
     Dates: start: 20080301
  20. ABILIFY [Concomitant]
     Route: 065
  21. CLONAZEPAM [Concomitant]
     Indication: BIPOLAR DISORDER
     Dosage: 1 MG TWICE IN THE AM, 3 MG TWICE IN THE PM
     Route: 048
     Dates: start: 19980101
  22. INVEGA [Suspect]
     Route: 048
     Dates: start: 20080101, end: 20080101
  23. RESTORIL [Concomitant]
     Indication: BIPOLAR DISORDER
     Route: 048
     Dates: start: 19980101
  24. BENADRYL [Concomitant]
     Indication: EXTRAPYRAMIDAL DISORDER
     Route: 048
     Dates: start: 19750101
  25. HALDOL [Interacting]
     Dosage: 5 MG 1 IN THE AM, 5 MG 1 IN THE PM AND 5 MG AS NEEDED
     Route: 048
     Dates: start: 19760101
  26. FLOVENT [Concomitant]
     Indication: ASTHMA
     Route: 048
     Dates: start: 20080301
  27. ZYPREXA [Concomitant]
     Route: 065

REACTIONS (37)
  - DIABETIC COMA [None]
  - AMNESIA [None]
  - RENAL FAILURE CHRONIC [None]
  - PITUITARY TUMOUR [None]
  - MANIA [None]
  - HYPERTENSION [None]
  - PALPITATIONS [None]
  - TACHYCARDIA [None]
  - VOMITING [None]
  - URINARY RETENTION [None]
  - NAUSEA [None]
  - DECREASED APPETITE [None]
  - RETCHING [None]
  - MUSCULAR WEAKNESS [None]
  - DIABETES MELLITUS INADEQUATE CONTROL [None]
  - ABDOMINAL PAIN [None]
  - BIPOLAR DISORDER [None]
  - POSTMENOPAUSAL HAEMORRHAGE [None]
  - DRUG INEFFECTIVE [None]
  - DRY MOUTH [None]
  - ANXIETY [None]
  - HYPOTENSION [None]
  - EYE SWELLING [None]
  - HEADACHE [None]
  - SOMNOLENCE [None]
  - ELECTROCARDIOGRAM QT PROLONGED [None]
  - CONSTIPATION [None]
  - VISION BLURRED [None]
  - HYPERPROLACTINAEMIA [None]
  - PANIC DISORDER [None]
  - DIZZINESS [None]
  - HYPERSENSITIVITY [None]
  - DRUG INTERACTION [None]
  - DISORIENTATION [None]
  - BLOOD GLUCOSE DECREASED [None]
  - CRYING [None]
  - ABDOMINAL DISTENSION [None]
